FAERS Safety Report 13756298 (Version 2)
Quarter: 2017Q3

REPORT INFORMATION
  Report Type: Spontaneous
  Country: FR (occurrence: FR)
  Receive Date: 20170714
  Receipt Date: 20170726
  Transmission Date: 20171127
  Serious: Yes (Other)
  Sender: FDA-Public Use
  Company Number: MQ-AMGEN-FRASP2017105342

PATIENT
  Sex: Female

DRUGS (1)
  1. XGEVA [Suspect]
     Active Substance: DENOSUMAB
     Indication: BONE GIANT CELL TUMOUR
     Dosage: UNK
     Route: 065
     Dates: start: 2013

REACTIONS (1)
  - Bone giant cell tumour [Not Recovered/Not Resolved]

NARRATIVE: CASE EVENT DATE: 2017
